FAERS Safety Report 9847212 (Version 2)
Quarter: 2014Q1

REPORT INFORMATION
  Report Type: Spontaneous
  Country: US (occurrence: US)
  Receive Date: 20140127
  Receipt Date: 20140131
  Transmission Date: 20141002
  Serious: Yes (Hospitalization)
  Sender: FDA-Public Use
  Company Number: US-PFIZER INC-2014024503

PATIENT
  Age: 69 Year
  Sex: Male
  Weight: 65.76 kg

DRUGS (4)
  1. CHANTIX [Suspect]
     Indication: SMOKING CESSATION THERAPY
     Dosage: 0.5 MG, 1X/DAY
     Route: 048
     Dates: start: 20100329, end: 2010
  2. CHANTIX [Suspect]
     Dosage: UNK
     Route: 048
     Dates: end: 2013
  3. CHANTIX [Suspect]
     Dosage: UNK
     Route: 048
  4. CHANTIX [Suspect]
     Dosage: 1 MG, UNK
     Route: 048

REACTIONS (4)
  - Pneumonia [Unknown]
  - Weight decreased [Unknown]
  - Nightmare [Unknown]
  - Abnormal dreams [Unknown]
